FAERS Safety Report 4894681-6 (Version None)
Quarter: 2006Q1

REPORT INFORMATION
  Report Type: 
  Country: None (occurrence: None)
  Receive Date: 20060127
  Receipt Date: 20051004
  Transmission Date: 20060701
  Serious: Yes (Hospitalization, Other)
  Sender: FDA-Public Use
  Company Number: US-MERCK-0510USA03096

PATIENT
  Age: 80 Year
  Sex: Female
  Weight: 66 kg

DRUGS (17)
  1. VIOXX [Suspect]
     Indication: ARTHRALGIA
     Route: 048
     Dates: start: 20000727, end: 20030712
  2. ZOCOR [Concomitant]
     Route: 048
  3. POTASSIUM CHLORIDE [Concomitant]
     Route: 048
  4. LORAZEPAM [Concomitant]
     Route: 048
  5. RISPERDAL [Concomitant]
     Route: 048
  6. ACETAMINOPHEN AND PROPOXYPHENE NAPSYLATE [Concomitant]
     Route: 048
  7. ASPIRIN [Concomitant]
     Route: 048
  8. METOPROLOL-BC [Concomitant]
     Route: 048
  9. ARICEPT [Concomitant]
     Route: 048
  10. PLAVIX [Concomitant]
     Route: 048
  11. ISOSORBIDE MONONITRATE [Concomitant]
     Route: 048
  12. FUROSEMIDE [Concomitant]
     Route: 048
  13. GENTAMICIN [Concomitant]
     Route: 047
  14. HYDROCORTISONE AND NEOMYCIN SULFATE AND POLYMYXIN B SULFATE [Concomitant]
     Route: 047
  15. ERYTHROMYCIN [Concomitant]
     Route: 048
  16. GUAIFENEX PSE [Concomitant]
     Route: 048
  17. PROMETHAZINE [Concomitant]
     Route: 048

REACTIONS (2)
  - CEREBROVASCULAR ACCIDENT [None]
  - MYOCARDIAL INFARCTION [None]
